FAERS Safety Report 12155094 (Version 1)
Quarter: 2016Q1

REPORT INFORMATION
  Report Type: Spontaneous
  Country: IN (occurrence: IN)
  Receive Date: 20160307
  Receipt Date: 20160307
  Transmission Date: 20160526
  Serious: Yes (Death, Other)
  Sender: FDA-Public Use
  Company Number: IN-CIPLA LTD.-2016IN02064

PATIENT

DRUGS (6)
  1. CARBOPLATIN. [Suspect]
     Active Substance: CARBOPLATIN
     Indication: MENINGIOMA MALIGNANT
     Dosage: TWO COURSES OF PACLITAXEL-CARBOPLATIN CHEMOTHERAPY
     Route: 065
  2. THALIDOMIDE [Suspect]
     Active Substance: THALIDOMIDE
     Dosage: UNK
     Route: 065
  3. PACLITAXEL. [Suspect]
     Active Substance: PACLITAXEL
     Indication: MENINGIOMA MALIGNANT
     Dosage: }TWO COURSES OF PACLITAXEL-CARBOPLATIN CHEMOTHERAPY
     Route: 065
  4. VINCRISTINE [Suspect]
     Active Substance: VINCRISTINE
     Indication: MENINGIOMA MALIGNANT
     Dosage: THREE COURSES OF VINCRISTINE- CYCLOPHOSPHAMIDE-ADRIAMYCIN CHEMOTHERAPY
     Route: 065
  5. DOXORUBICIN [Suspect]
     Active Substance: DOXORUBICIN
     Indication: MENINGIOMA MALIGNANT
     Dosage: THREE COURSES OF VINCRISTINE- CYCLOPHOSPHAMIDE-ADRIAMYCIN (DOXORUBICIN) CHEMOTHERAPY
     Route: 065
  6. CYCLOPHOSPHAMIDE. [Suspect]
     Active Substance: CYCLOPHOSPHAMIDE
     Indication: MENINGIOMA MALIGNANT
     Dosage: THREE COURSES OF VINCRISTINE- CYCLOPHOSPHAMIDE-ADRIAMYCIN CHEMOTHERAPY
     Route: 065

REACTIONS (2)
  - Meningioma malignant [Fatal]
  - Drug ineffective [Unknown]
